FAERS Safety Report 18108423 (Version 1)
Quarter: 2020Q3

REPORT INFORMATION
  Report Type: Spontaneous
  Country: GB (occurrence: GB)
  Receive Date: 20200803
  Receipt Date: 20200803
  Transmission Date: 20201103
  Serious: Yes (Hospitalization)
  Sender: FDA-Public Use
  Company Number: GB-PERRIGO-20GB010752

PATIENT
  Age: 25 Year
  Sex: Male

DRUGS (3)
  1. PANADEINE                          /00116401/ [Suspect]
     Active Substance: ACETAMINOPHEN\CODEINE PHOSPHATE
     Indication: PRODUCT USED FOR UNKNOWN INDICATION
     Dosage: 20 DF
     Route: 048
  2. VEGANIN /00055401/ [Suspect]
     Active Substance: ACETAMINOPHEN\ASPIRIN\CODEINE
     Indication: PRODUCT USED FOR UNKNOWN INDICATION
     Dosage: 24 DF
     Route: 048
  3. PARACETAMOL [Suspect]
     Active Substance: ACETAMINOPHEN
     Indication: PRODUCT USED FOR UNKNOWN INDICATION
     Dosage: 26 DF
     Route: 048

REACTIONS (3)
  - Hepatic failure [Recovered/Resolved]
  - Hepatitis acute [Recovered/Resolved]
  - Intentional overdose [Recovered/Resolved]
